FAERS Safety Report 8310589-8 (Version None)
Quarter: 2012Q2

REPORT INFORMATION
  Report Type: 
  Country: None (occurrence: None)
  Receive Date: 20120425
  Receipt Date: 20120425
  Transmission Date: 20120825
  Serious: Yes (Hospitalization)
  Sender: FDA-Public Use
  Company Number: None

PATIENT
  Sex: Male
  Weight: 75 kg

DRUGS (11)
  1. METOPROLOL TARTRATE [Concomitant]
  2. NIACIN [Concomitant]
  3. HEPARIN [Suspect]
     Indication: DEEP VEIN THROMBOSIS
     Dosage: VARIOUS
     Dates: start: 20120406, end: 20120408
  4. HEPARIN [Suspect]
     Indication: PULMONARY EMBOLISM
     Dosage: VARIOUS
     Dates: start: 20120406, end: 20120408
  5. VITAMIN D [Concomitant]
  6. ASPIRIN [Concomitant]
  7. DILTIAZEM HCL [Concomitant]
  8. SIMVASTATIN [Concomitant]
  9. SENNA [Concomitant]
  10. RANITIDINE [Concomitant]
  11. ACETAMINOPHEN [Concomitant]

REACTIONS (6)
  - SYNCOPE [None]
  - TACHYCARDIA [None]
  - COLD SWEAT [None]
  - HEPARIN-INDUCED THROMBOCYTOPENIA [None]
  - DIZZINESS [None]
  - DYSPNOEA [None]
